FAERS Safety Report 23461985 (Version 1)
Quarter: 2024Q1

REPORT INFORMATION
  Report Type: Spontaneous
  Country: CN (occurrence: None)
  Receive Date: 20240131
  Receipt Date: 20240131
  Transmission Date: 20240410
  Serious: Yes (Other)
  Sender: FDA-Public Use
  Company Number: CN-ROCHE-3497682

PATIENT
  Age: 66 Year
  Sex: Male

DRUGS (6)
  1. POLIVY [Suspect]
     Active Substance: POLATUZUMAB VEDOTIN-PIIQ
     Indication: Diffuse large B-cell lymphoma stage II
     Dosage: NEXT TREATMENT ON 23/APR/2023, 04/JUN/2023, 06/JUL/2023, 04/AUG/2023, 08/SEP/2023.
     Route: 065
     Dates: start: 20230401
  2. RITUXIMAB [Concomitant]
     Active Substance: RITUXIMAB
     Dosage: NON-ROCHE DRUGS, TREATMENT ON 01-APR-2023, 23-APR-2023, 04-JUN-2023, 06-JUL-2023, 04-AUG-2023, 08-SE
     Route: 065
  3. CYCLOPHOSPHAMIDE [Concomitant]
     Active Substance: CYCLOPHOSPHAMIDE
     Dosage: TREATMENT ON 01-APR-2023, 23-APR-2023, 04-JUN-2023, 06-JUL-2023, 04-AUG-2023
  4. PREDNISONE [Concomitant]
     Active Substance: PREDNISONE
     Dosage: TREATMENT ON 01-APR-2023, 23-APR-2023, 04-JUN-2023, 06-JUL-2023, 04-AUG-2023
  5. RECOMBINANT HUMAN GRANULOCYTE COLONY STIMULATING FACTOR (UNK INGREDIEN [Concomitant]
  6. PLERIXAFOR [Concomitant]
     Active Substance: PLERIXAFOR

REACTIONS (3)
  - Arrhythmia [Recovering/Resolving]
  - Myelosuppression [Unknown]
  - Pneumonia [Unknown]

NARRATIVE: CASE EVENT DATE: 20230425
